FAERS Safety Report 8154113-1 (Version None)
Quarter: 2012Q1

REPORT INFORMATION
  Report Type: 
  Country: None (occurrence: None)
  Receive Date: 20120221
  Receipt Date: 20120213
  Transmission Date: 20120608
  Serious: Yes (Other)
  Sender: FDA-Public Use
  Company Number: US-MERCK-1108USA01567

PATIENT
  Age: 57 Year
  Sex: Female
  Weight: 56 kg

DRUGS (2)
  1. FOSAMAX [Suspect]
     Indication: OSTEOPENIA
     Route: 048
     Dates: start: 20060101, end: 20091201
  2. ALENDRONATE SODIUM [Suspect]
     Route: 048

REACTIONS (9)
  - TOOTH DISORDER [None]
  - GASTROINTESTINAL DISORDER [None]
  - OVARIAN CYST [None]
  - ENDOMETRIAL HYPERPLASIA [None]
  - VAGINAL DISORDER [None]
  - FEMUR FRACTURE [None]
  - UTERINE POLYP [None]
  - ARTHRALGIA [None]
  - UTERINE LEIOMYOMA [None]
